FAERS Safety Report 6588648-X (Version None)
Quarter: 2010Q1

REPORT INFORMATION
  Report Type: 
  Country: None (occurrence: None)
  Receive Date: 20100218
  Receipt Date: 20091130
  Transmission Date: 20100710
  Serious: No
  Sender: FDA-Public Use
  Company Number: US-ALLERGAN-0916556US

PATIENT
  Sex: Female

DRUGS (1)
  1. BOTOX COSMETIC [Suspect]
     Indication: SKIN WRINKLING
     Dosage: UNK
     Route: 030
     Dates: start: 20091112, end: 20091112

REACTIONS (5)
  - DRY MOUTH [None]
  - EYELID PTOSIS [None]
  - HEADACHE [None]
  - NAUSEA [None]
  - SKIN TIGHTNESS [None]
